FAERS Safety Report 16331745 (Version 1)
Quarter: 2019Q2

REPORT INFORMATION
  Report Type: Spontaneous
  Country: US (occurrence: US)
  Receive Date: 20190412
  Receipt Date: 20190412
  Transmission Date: 20190711
  Serious: No
  Sender: FDA-Public Use
  Company Number: None

PATIENT
  Age: 61 Year
  Sex: Male

DRUGS (1)
  1. SYMFI [Suspect]
     Active Substance: EFAVIRENZ\LAMIVUDINE\TENOFOVIR DISOPROXIL FUMARATE
     Route: 048
     Dates: start: 201810, end: 201902

REACTIONS (2)
  - Hepatic steatosis [None]
  - Bone density decreased [None]

NARRATIVE: CASE EVENT DATE: 20190201
